FAERS Safety Report 11024194 (Version 4)
Quarter: 2015Q4

REPORT INFORMATION
  Report Type: Spontaneous
  Country: GH (occurrence: GH)
  Receive Date: 20150413
  Receipt Date: 20151204
  Transmission Date: 20160304
  Serious: Yes (Death, Other)
  Sender: FDA-Public Use
  Company Number: GH-ROCHE-1561842

PATIENT
  Age: 57 Year
  Sex: Female

DRUGS (2)
  1. GEMCITABINE [Suspect]
     Active Substance: GEMCITABINE\GEMCITABINE HYDROCHLORIDE
     Indication: OVARIAN CANCER RECURRENT
     Dosage: DAY 1 AND DAY 8, EVERY 3 WEEKS
     Route: 065
     Dates: start: 20140919
  2. AVASTIN [Suspect]
     Active Substance: BEVACIZUMAB
     Indication: OVARIAN CANCER RECURRENT
     Dosage: RECEIVED 6 CYCLES, 695 MG EVERY 3 WEEKS
     Route: 042
     Dates: start: 20141128, end: 20150309

REACTIONS (5)
  - Carbohydrate antigen 125 increased [Unknown]
  - Metastases to pelvis [Unknown]
  - Renal failure [Unknown]
  - Drug ineffective [Fatal]
  - Ovarian cancer [Fatal]

NARRATIVE: CASE EVENT DATE: 201503
